FAERS Safety Report 5721465-9 (Version None)
Quarter: 2008Q2

REPORT INFORMATION
  Report Type: 
  Country: None (occurrence: None)
  Receive Date: 20080428
  Receipt Date: 20080428
  Transmission Date: 20081010
  Serious: Yes (Other)
  Sender: FDA-Public Use
  Company Number: None

PATIENT
  Age: 9 Year
  Sex: Male
  Weight: 31.7518 kg

DRUGS (1)
  1. GUANFACINE HYDROCHLORIDE [Suspect]
     Indication: ANGER
     Dosage: HALF A PILL TWICE A DAY
     Dates: start: 20080423, end: 20080424

REACTIONS (2)
  - AGGRESSION [None]
  - SUICIDAL IDEATION [None]
